FAERS Safety Report 11159842 (Version 2)
Quarter: 2015Q2

REPORT INFORMATION
  Report Type: Report from Study
  Country: BR (occurrence: BR)
  Receive Date: 20150603
  Receipt Date: 20150605
  Transmission Date: 20150821
  Serious: Yes (Hospitalization, Other)
  Sender: FDA-Public Use
  Company Number: BR-ELI_LILLY_AND_COMPANY-BR201505003395

PATIENT

DRUGS (1)
  1. LISPRO REGLISPRO [Suspect]
     Active Substance: INSULIN LISPRO
     Indication: PRODUCT USED FOR UNKNOWN INDICATION
     Dosage: UNK, UNKNOWN
     Route: 064

REACTIONS (4)
  - Premature baby [Unknown]
  - Bacterial infection [Unknown]
  - Foetal exposure during pregnancy [Recovered/Resolved]
  - Emphysema [Unknown]
